FAERS Safety Report 7447006-6 (Version None)
Quarter: 2011Q2

REPORT INFORMATION
  Report Type: 
  Country: None (occurrence: None)
  Receive Date: 20110429
  Receipt Date: 20110419
  Transmission Date: 20111010
  Serious: Yes (Hospitalization)
  Sender: FDA-Public Use
  Company Number: US-US-EMD SERONO, INC.-7054945

PATIENT
  Sex: Female

DRUGS (2)
  1. REBIF [Suspect]
     Indication: PRODUCT USED FOR UNKNOWN INDICATION
     Route: 058
     Dates: start: 20091228
  2. UNSPECIFIED PAIN MEDICATION [Concomitant]
     Indication: PAIN

REACTIONS (3)
  - PAIN IN EXTREMITY [None]
  - ASTHMA [None]
  - PNEUMONIA [None]
